FAERS Safety Report 25748866 (Version 2)
Quarter: 2025Q4

REPORT INFORMATION
  Report Type: Report from Study
  Country: US (occurrence: US)
  Receive Date: 20250902
  Receipt Date: 20251124
  Transmission Date: 20260118
  Serious: Yes (Hospitalization)
  Sender: RECORDATI
  Company Number: US-ORPHANEU-2025006102

PATIENT
  Sex: Female
  Weight: 117.91 kg

DRUGS (15)
  1. ISTURISA [Suspect]
     Active Substance: OSILODROSTAT PHOSPHATE
     Indication: Pituitary-dependent Cushing^s syndrome
     Dosage: 7 MG, BID (STRENGTH: 1 MG (2) AND STRENGTH: 5 MG (1))
     Route: 048
     Dates: start: 20250407, end: 202508
  2. ISTURISA [Suspect]
     Active Substance: OSILODROSTAT PHOSPHATE
     Indication: Cushing^s syndrome
     Dosage: DECREASED DOSE
     Route: 048
     Dates: start: 202508, end: 202508
  3. ISTURISA [Suspect]
     Active Substance: OSILODROSTAT PHOSPHATE
     Dosage: 7 MG, BID (SLOWLY INCREASING AGAIN)
     Route: 048
     Dates: start: 202508, end: 2025
  4. ISTURISA [Suspect]
     Active Substance: OSILODROSTAT PHOSPHATE
     Dosage: UNK
     Route: 048
     Dates: start: 2025, end: 2025
  5. ISTURISA [Suspect]
     Active Substance: OSILODROSTAT PHOSPHATE
     Dosage: 8 MILLIGRAM DAILY (DOSE INCREASED)
     Route: 048
     Dates: start: 2025
  6. FLONASE ALLERGY RELIEF [Concomitant]
     Active Substance: FLUTICASONE PROPIONATE
     Indication: Product used for unknown indication
     Dosage: 50 MCG/ACT AS DAILY (NASAL SUSPENSION)
     Route: 045
     Dates: start: 20220301
  7. SYNTHROID [Concomitant]
     Active Substance: LEVOTHYROXINE SODIUM
     Indication: Product used for unknown indication
     Dosage: 300 MICROGRAM, QD (TABLET 300 MCG)
     Route: 048
     Dates: start: 20230717
  8. MONTELUKAST SODIUM [Concomitant]
     Active Substance: MONTELUKAST SODIUM
     Indication: Product used for unknown indication
     Dosage: 10 MG, QD (TABLET 10 MG)
     Route: 048
     Dates: start: 20220301
  9. NYSTATIN [Concomitant]
     Active Substance: NYSTATIN
     Indication: Product used for unknown indication
     Dosage: 500000 UNIT, TID
     Route: 048
     Dates: start: 20220301
  10. HORIZANT [Concomitant]
     Active Substance: GABAPENTIN ENACARBIL
     Indication: Product used for unknown indication
     Dosage: 600 MG, QD (TABLET EXTENDED RELEASE)
     Route: 048
     Dates: start: 20230701
  11. AFREZZA [Concomitant]
     Active Substance: INSULIN HUMAN
     Indication: Product used for unknown indication
     Dosage: 8 UNIT, QD (INHALATION POWDER)
     Dates: start: 20240407
  12. ERMEZA [Concomitant]
     Active Substance: LEVOTHYROXINE SODIUM
     Indication: Product used for unknown indication
     Dosage: 150 UNKNOWN UNITS, DAILY (150 MCG/5ML SOLUTION)
     Route: 048
     Dates: start: 20240407
  13. METFORMIN HYDROCHLORIDE [Concomitant]
     Active Substance: METFORMIN HYDROCHLORIDE
     Indication: Product used for unknown indication
     Dosage: 1000 MG, QD (TABLET 1000 MG)
     Route: 048
     Dates: start: 20250623
  14. ACTOS [Concomitant]
     Active Substance: PIOGLITAZONE HYDROCHLORIDE
     Indication: Product used for unknown indication
     Dosage: 15 MG, QD (TABLET 15 MG)
     Route: 048
     Dates: start: 20250623
  15. MOUNJARO [Concomitant]
     Active Substance: TIRZEPATIDE
     Indication: Product used for unknown indication
     Dosage: 15 MG/0.5ML WEEKLY (SUBCUTANEOUS SOLUTION, AUTO)
     Route: 058
     Dates: start: 20250623

REACTIONS (5)
  - Renal haemorrhage [Recovered/Resolved]
  - Sinusitis [Recovered/Resolved]
  - Blood glucose fluctuation [Recovered/Resolved]
  - Brain fog [Not Recovered/Not Resolved]
  - Fatigue [Not Recovered/Not Resolved]

NARRATIVE: CASE EVENT DATE: 20250101
